FAERS Safety Report 9568125 (Version 1)
Quarter: 2013Q3

REPORT INFORMATION
  Report Type: Spontaneous
  Country: US (occurrence: US)
  Receive Date: 20130930
  Receipt Date: 20130930
  Transmission Date: 20140515
  Serious: No
  Sender: FDA-Public Use
  Company Number: US-AMGEN-USASP2013057841

PATIENT
  Age: 42 Year
  Sex: Female

DRUGS (18)
  1. ENBREL [Suspect]
     Indication: PRODUCT USED FOR UNKNOWN INDICATION
     Dosage: 25 MG, 2 TIMES/WK
     Route: 058
  2. CALTRATE D                         /00944201/ [Concomitant]
     Dosage: 600-800
  3. PROTONIX [Concomitant]
     Dosage: UNK
  4. RESTASIS [Concomitant]
     Dosage: 0.05 %, UNK
  5. PLAQUENIL                          /00072602/ [Concomitant]
     Dosage: 200 MG, UNK
  6. PREMARIN [Concomitant]
     Dosage: 0.3 MG, UNK
  7. MIRCETTE [Concomitant]
     Dosage: UNK, 28 DAYS
  8. CARAFATE [Concomitant]
     Dosage: 1 GM, UNK
  9. GABAPENTIN [Concomitant]
     Dosage: 100 MG, UNK
  10. PROMETHAZINE [Concomitant]
     Dosage: 12.5 MG, UNK
  11. FLONASE                            /00908302/ [Concomitant]
     Dosage: 0.05 %, UNK
  12. SUMATRIPTAN [Concomitant]
     Dosage: 6 MG, UNK
  13. METHOTREXATE [Concomitant]
     Dosage: 1G/40ML, UNK
  14. MULTIVITAMINS, PLAIN [Concomitant]
     Dosage: UNK
  15. FOLIC ACID [Concomitant]
     Dosage: UNK
  16. OXYTROL [Concomitant]
     Dosage: 3.9 MG, UNK
  17. PENTASA [Concomitant]
     Dosage: 500 MG, UNK
  18. IBUPROFEN [Concomitant]
     Dosage: UNK

REACTIONS (4)
  - Injection site reaction [Unknown]
  - Injection site erythema [Unknown]
  - Injection site swelling [Unknown]
  - Injection site pruritus [Unknown]
